FAERS Safety Report 10684595 (Version 1)
Quarter: 2014Q4

REPORT INFORMATION
  Report Type: Spontaneous
  Country: None (occurrence: None)
  Receive Date: 20141230
  Receipt Date: 20141230
  Transmission Date: 20150529
  Serious: Yes (Disabling)
  Sender: FDA-Public Use
  Company Number: None

PATIENT
  Age: 58 Year
  Sex: Female
  Weight: 77.11 kg

DRUGS (1)
  1. DULOXETINE [Suspect]
     Active Substance: DULOXETINE
     Indication: DEPRESSION
     Dosage: 1 CAPSULE ONCE DAILY TAKEN BY MOUTH
     Route: 048

REACTIONS (7)
  - Anxiety [None]
  - Depression [None]
  - Headache [None]
  - Vomiting [None]
  - Crying [None]
  - Aggression [None]
  - Pain [None]
